FAERS Safety Report 12657194 (Version 2)
Quarter: 2017Q3

REPORT INFORMATION
  Report Type: Spontaneous
  Country: US (occurrence: US)
  Receive Date: 20160816
  Receipt Date: 20170818
  Transmission Date: 20171127
  Serious: No
  Sender: FDA-Public Use
  Company Number: US-ENDO PHARMACEUTICALS INC.-2016-003372

PATIENT
  Age: 51 Year
  Sex: Female
  Weight: 95.34 kg

DRUGS (1)
  1. SUMAVEL DOSEPRO [Suspect]
     Active Substance: SUMATRIPTAN SUCCINATE
     Indication: MIGRAINE
     Dosage: INJECT SUBCUTANEOUSLY AS NEEDED. MAY USE 2 INJECTIONS WITHIN 24 HOURS, 2 HOURS APART.
     Route: 058

REACTIONS (3)
  - Device malfunction [Recovered/Resolved]
  - Abdominal discomfort [Recovered/Resolved]
  - Drug dose omission [Recovered/Resolved]

NARRATIVE: CASE EVENT DATE: 20160516
